FAERS Safety Report 20315166 (Version 1)
Quarter: 2022Q1

REPORT INFORMATION
  Report Type: Spontaneous
  Country: US (occurrence: None)
  Receive Date: 20220110
  Receipt Date: 20220110
  Transmission Date: 20220423
  Serious: No
  Sender: FDA-Public Use
  Company Number: US-ROCHE-2745448

PATIENT
  Age: 71 Year
  Sex: Male

DRUGS (1)
  1. RITUXAN [Suspect]
     Active Substance: RITUXIMAB
     Indication: Cutaneous lymphoma
     Route: 041

REACTIONS (4)
  - Ill-defined disorder [Unknown]
  - Spinal stenosis [Unknown]
  - Stenosis [Unknown]
  - Neuropathy peripheral [Unknown]
